FAERS Safety Report 16202710 (Version 1)
Quarter: 2019Q2

REPORT INFORMATION
  Report Type: Spontaneous
  Country: US (occurrence: US)
  Receive Date: 20190416
  Receipt Date: 20190416
  Transmission Date: 20190711
  Serious: No
  Sender: FDA-Public Use
  Company Number: US-PFIZER INC-2019097213

PATIENT
  Age: 13 Year
  Sex: Male
  Weight: 70.4 kg

DRUGS (14)
  1. GOLD BOND ECZEMA RELIEF [Concomitant]
     Dosage: UNK, AS NEEDED
     Route: 061
     Dates: start: 20151020
  2. TOFACITINIB CITRATE [Suspect]
     Active Substance: TOFACITINIB CITRATE
     Indication: ALOPECIA AREATA
     Dosage: 1 APPLICATION, 2X/DAY
     Route: 061
     Dates: start: 20160816, end: 20160901
  3. NASONEX [Concomitant]
     Active Substance: MOMETASONE FUROATE
     Dosage: 0.05 MG, AS NEEDED
     Dates: start: 20140401
  4. FLOVENT [Concomitant]
     Active Substance: FLUTICASONE PROPIONATE
     Dosage: 0.11 MG, AS NEEDED
     Route: 055
     Dates: start: 20140401
  5. ZYRTEC [Concomitant]
     Active Substance: CETIRIZINE HYDROCHLORIDE
     Dosage: 10 MG, AS NEEDED
  6. EPIPEN [Concomitant]
     Active Substance: EPINEPHRINE
     Dosage: 0.3 MG, AS NEEDED
     Dates: start: 2004
  7. ADVIL [IBUPROFEN] [Concomitant]
     Active Substance: IBUPROFEN
     Dosage: 400 MG, AS NEEDED
     Route: 048
     Dates: start: 2016
  8. HYDROCORTISONE. [Concomitant]
     Active Substance: HYDROCORTISONE
     Dosage: UNK, AS NEEDED
     Route: 061
     Dates: start: 2018
  9. FLONASE [Concomitant]
     Active Substance: FLUTICASONE PROPIONATE
     Dosage: 0.05 MG, UNK
     Dates: start: 20151207
  10. VASELINE [PARAFFIN SOFT] [Concomitant]
     Dosage: UNK, AS NEEDED
     Route: 061
     Dates: start: 20151020
  11. PROAIR HFA [Concomitant]
     Active Substance: ALBUTEROL SULFATE
     Dosage: 0.09 MG, AS NEEDED
     Dates: start: 2010
  12. AQUAPHOR [MINERAL WAX;PARAFFIN, LIQUID;PETROLATUM;WOOL ALCOHOLS] [Concomitant]
     Dosage: UNK, AS NEEDED
     Dates: start: 20151020
  13. OFLOXACIN [OFLOXACIN HYDROCHLORIDE] [Concomitant]
     Dosage: UNK, AS NEEDED
     Route: 047
     Dates: start: 20151026
  14. PETROLATUM [PARAFFIN] [Concomitant]
     Dosage: UNK, AS NEEDED
     Route: 061
     Dates: start: 20151020

REACTIONS (2)
  - Product use issue [Unknown]
  - Drug ineffective for unapproved indication [Unknown]

NARRATIVE: CASE EVENT DATE: 20160816
